FAERS Safety Report 6631153-2 (Version None)
Quarter: 2010Q1

REPORT INFORMATION
  Report Type: 
  Country: None (occurrence: None)
  Receive Date: 20100309
  Receipt Date: 20100223
  Transmission Date: 20100710
  Serious: Yes (Hospitalization, Other)
  Sender: FDA-Public Use
  Company Number: 231912J10USA

PATIENT
  Age: 57 Year
  Sex: Female
  Weight: 59 kg

DRUGS (7)
  1. REBIF [Suspect]
     Indication: MULTIPLE SCLEROSIS
     Dosage: 44 MCG, 3 IN 1 WEEKS, SUBCUTANEOUS
     Route: 058
     Dates: start: 20010101
  2. AMITRIPTYLINE HYDROCHLORIDE [Concomitant]
  3. AMLODIPINE [Concomitant]
  4. KEPPRA [Concomitant]
  5. PROVIGIL [Concomitant]
  6. ADVAIR DISKUS 100/50 [Concomitant]
  7. LAMICTAL [Concomitant]

REACTIONS (8)
  - ARTHROPATHY [None]
  - BRONCHITIS [None]
  - INJECTION SITE ERYTHEMA [None]
  - INJECTION SITE MASS [None]
  - INJECTION SITE PRURITUS [None]
  - NASOPHARYNGITIS [None]
  - OSTEOARTHRITIS [None]
  - SPINAL COLUMN STENOSIS [None]
